FAERS Safety Report 22828144 (Version 3)
Quarter: 2023Q4

REPORT INFORMATION
  Report Type: Spontaneous
  Country: US (occurrence: US)
  Receive Date: 20230816
  Receipt Date: 20231004
  Transmission Date: 20240109
  Serious: No
  Sender: FDA-Public Use
  Company Number: US-PFIZER INC-202300274833

PATIENT
  Age: 65 Year
  Sex: Female
  Weight: 87.982 kg

DRUGS (7)
  1. PAXLOVID [Suspect]
     Active Substance: NIRMATRELVIR\RITONAVIR
     Indication: COVID-19 treatment
     Dosage: UNK
     Dates: start: 20230729, end: 20230803
  2. ATORVASTATIN [Concomitant]
     Active Substance: ATORVASTATIN
     Dosage: STARTED DEC
     Dates: end: 20230728
  3. ATORVASTATIN [Concomitant]
     Active Substance: ATORVASTATIN
     Dosage: UNK
     Dates: start: 20230804
  4. LEVOTHYROXINE [Concomitant]
     Active Substance: LEVOTHYROXINE
     Dosage: } 10 YEARS
     Dates: start: 2006
  5. LISINOPRIL [Concomitant]
     Active Substance: LISINOPRIL
     Dosage: } 10 YEARS
     Dates: start: 2010
  6. PEPCID [Concomitant]
     Active Substance: FAMOTIDINE
     Dosage: 2 YEARS
     Dates: start: 2020
  7. SUDAFED [Concomitant]
     Active Substance: PSEUDOEPHEDRINE HYDROCHLORIDE
     Dosage: UNK
     Dates: start: 20230729, end: 20230809

REACTIONS (2)
  - COVID-19 [Recovered/Resolved]
  - Disease recurrence [Recovered/Resolved]

NARRATIVE: CASE EVENT DATE: 20230808
